FAERS Safety Report 8257790-X (Version None)
Quarter: 2012Q2

REPORT INFORMATION
  Report Type: 
  Country: None (occurrence: None)
  Receive Date: 20120404
  Receipt Date: 20120326
  Transmission Date: 20120825
  Serious: No
  Sender: FDA-Public Use
  Company Number: US-BIOGENIDEC-2012BI010660

PATIENT
  Age: 48 Year
  Sex: Female

DRUGS (3)
  1. AVONEX [Concomitant]
     Indication: MULTIPLE SCLEROSIS
     Route: 030
  2. TYSABRI [Suspect]
     Indication: MULTIPLE SCLEROSIS
     Route: 042
     Dates: start: 20120321
  3. TOPAMAX [Concomitant]
     Indication: HEADACHE

REACTIONS (14)
  - PRURITUS GENERALISED [None]
  - HEADACHE [None]
  - CHEST PAIN [None]
  - PHARYNGEAL OEDEMA [None]
  - OEDEMA MOUTH [None]
  - CHEST DISCOMFORT [None]
  - ASTHENIA [None]
  - PRURITUS [None]
  - SWOLLEN TONGUE [None]
  - FATIGUE [None]
  - NAUSEA [None]
  - THROAT TIGHTNESS [None]
  - CHILLS [None]
  - HYPERSENSITIVITY [None]
